FAERS Safety Report 10714705 (Version 5)
Quarter: 2015Q4

REPORT INFORMATION
  Report Type: Spontaneous
  Country: JP (occurrence: JP)
  Receive Date: 20150115
  Receipt Date: 20151214
  Transmission Date: 20160304
  Serious: Yes (Other)
  Sender: FDA-Public Use
  Company Number: JP-GILEAD-2014-0111719

PATIENT
  Age: 71 Year
  Sex: Female
  Weight: 43 kg

DRUGS (1)
  1. ADEFOVIR DIPIVOXIL. [Suspect]
     Active Substance: ADEFOVIR DIPIVOXIL
     Indication: CHRONIC HEPATITIS B
     Dosage: 10 MG, QD
     Route: 048
     Dates: start: 20080509, end: 20120810

REACTIONS (21)
  - Chest pain [Unknown]
  - Hyperphosphatasaemia [Recovering/Resolving]
  - Arthralgia [Recovering/Resolving]
  - Back pain [Recovering/Resolving]
  - Renal tubular disorder [Unknown]
  - Blood alkaline phosphatase increased [Recovering/Resolving]
  - Muscle atrophy [Recovering/Resolving]
  - Tibia fracture [Recovering/Resolving]
  - Fanconi syndrome acquired [Recovering/Resolving]
  - Osteomalacia [Recovering/Resolving]
  - Muscular weakness [Unknown]
  - Muscular weakness [Recovering/Resolving]
  - Bone density decreased [Unknown]
  - Hepatocellular carcinoma [Unknown]
  - Blood 1,25-dihydroxycholecalciferol decreased [Unknown]
  - Fracture [Recovering/Resolving]
  - Spinal fracture [Unknown]
  - Hypophosphataemia [Recovering/Resolving]
  - Gait disturbance [Recovering/Resolving]
  - Osteosclerosis [Unknown]
  - Bone pain [Recovering/Resolving]

NARRATIVE: CASE EVENT DATE: 201112
